FAERS Safety Report 8227984 (Version 2)
Quarter: 2012Q4

REPORT INFORMATION
  Report Type: 
  Country: US (occurrence: US)
  Receive Date: 20111103
  Receipt Date: 20121107
  Transmission Date: 20130627
  Serious: No
  Sender: FDA-Public Use
  Company Number: US-AMGEN-USASP2011040589

PATIENT
  Sex: Female
  Weight: 68.03 kg

DRUGS (16)
  1. ENBREL [Suspect]
     Indication: PRODUCT USED FOR UNKNOWN INDICATION
     Dosage: 50 mg, qwk
  2. MULTIVITAMIN                       /00097801/ [Concomitant]
  3. LOVAZA [Concomitant]
     Dosage: 1 mg, UNK
  4. ASPIRIN [Concomitant]
     Dosage: 81 mg, UNK
  5. TRIAMTERENE AND HYDROCHLOROTHIAZIDE [Concomitant]
     Dosage: UNK
  6. FENOFIBRATE [Concomitant]
     Dosage: 54 mg, UNK
  7. PROTONIX [Concomitant]
     Dosage: UNK
  8. SYNTHROID [Concomitant]
     Dosage: 25 mug, UNK
  9. FLUTICASONE [Concomitant]
     Dosage: 50 mug, UNK
  10. VITAMIN D /00107901/ [Concomitant]
     Dosage: 50 UNK, UNK
  11. CALCIUM +D                         /00188401/ [Concomitant]
     Dosage: UNK
  12. VITAMIN B12                        /00056201/ [Concomitant]
     Dosage: 500 mug, UNK
  13. FLAXSEED OIL [Concomitant]
     Dosage: 1000 mg, UNK
  14. CINNAMON                           /01647501/ [Concomitant]
     Dosage: 500 mg, UNK
  15. NAPROXEN [Concomitant]
     Dosage: 275 mg, UNK
  16. HYDROCODONE W/ACETAMINOPHEN [Concomitant]
     Dosage: 500 mg, UNK

REACTIONS (2)
  - Dizziness [Unknown]
  - Sinusitis [Unknown]
